FAERS Safety Report 7602138-4 (Version None)
Quarter: 2011Q3

REPORT INFORMATION
  Report Type: 
  Country: None (occurrence: None)
  Receive Date: 20110711
  Receipt Date: 20110701
  Transmission Date: 20111222
  Serious: Yes (Death, Hospitalization)
  Sender: FDA-Public Use
  Company Number: PHHO2011US11569

PATIENT
  Sex: Male
  Weight: 79 kg

DRUGS (12)
  1. HYDROCHLOROTHIAZIDE [Concomitant]
  2. NORCO [Concomitant]
  3. BACITRACIN [Concomitant]
  4. PROTONIX [Concomitant]
  5. AFINITOR [Suspect]
     Indication: MANTLE CELL LYMPHOMA
     Dosage: UNK
     Route: 048
     Dates: start: 20051209
  6. MUCINEX [Concomitant]
  7. TOPROL-XL [Concomitant]
  8. CALCIUM W/VITAMIN D NOS [Concomitant]
  9. SENOKOT [Concomitant]
  10. COLACE [Concomitant]
  11. DULCOLAX [Concomitant]
  12. ZESTRIL [Concomitant]

REACTIONS (3)
  - DEEP VEIN THROMBOSIS [None]
  - CARDIO-RESPIRATORY ARREST [None]
  - CONCOMITANT DISEASE AGGRAVATED [None]
